FAERS Safety Report 10795526 (Version 1)
Quarter: 2015Q1

REPORT INFORMATION
  Report Type: Spontaneous
  Country: US (occurrence: US)
  Receive Date: 20150215
  Receipt Date: 20150215
  Transmission Date: 20150721
  Serious: Yes (Death, Life-Threatening, Hospitalization, Other)
  Sender: FDA-Public Use
  Company Number: US-ACTAVIS-2015-01882

PATIENT
  Age: 63 Year
  Sex: Female

DRUGS (1)
  1. VALPROIC ACID (UNKNOWN) [Suspect]
     Active Substance: VALPROIC ACID
     Indication: COMPLETED SUICIDE
     Dosage: UNK
     Route: 048

REACTIONS (6)
  - Hypotension [Not Recovered/Not Resolved]
  - Intentional overdose [Fatal]
  - Depressed level of consciousness [Not Recovered/Not Resolved]
  - Completed suicide [Fatal]
  - Miosis [Unknown]
  - Ammonia increased [Recovered/Resolved]
